FAERS Safety Report 8596091-7 (Version None)
Quarter: 2012Q3

REPORT INFORMATION
  Report Type: 
  Country: None (occurrence: None)
  Receive Date: 20120815
  Receipt Date: 20120803
  Transmission Date: 20120928
  Serious: No
  Sender: FDA-Public Use
  Company Number: US-ASTRAZENECA-2012SE55388

PATIENT
  Age: 75 Year
  Sex: Female

DRUGS (2)
  1. METOPROLOL TARTRATE [Suspect]
     Route: 065
  2. METOPROLOL SUCCINATE [Suspect]
     Route: 048

REACTIONS (2)
  - HYPOACUSIS [None]
  - CHRONIC OBSTRUCTIVE PULMONARY DISEASE [None]
